FAERS Safety Report 15186179 (Version 1)
Quarter: 2018Q3

REPORT INFORMATION
  Report Type: Report from Study
  Country: US (occurrence: US)
  Receive Date: 20180723
  Receipt Date: 20180723
  Transmission Date: 20181010
  Serious: No
  Sender: FDA-Public Use
  Company Number: US-EXELIXIS-CABO-18012078

PATIENT
  Age: 50 Year
  Sex: Female

DRUGS (4)
  1. OMEPRAZOLE. [Concomitant]
     Active Substance: OMEPRAZOLE
     Dosage: UNK
  2. COMETRIQ [Suspect]
     Active Substance: CABOZANTINIB S-MALATE
     Dosage: 20 MG ALTERNATING WITH 40 MG QOD
  3. LEVOTHYROXINE SODIUM. [Concomitant]
     Active Substance: LEVOTHYROXINE SODIUM
     Dosage: UNK
  4. COMETRIQ [Suspect]
     Active Substance: CABOZANTINIB S-MALATE
     Indication: THYROID CANCER
     Dosage: 140 MG, QD
     Route: 048
     Dates: start: 20180112, end: 20180131

REACTIONS (16)
  - Limb discomfort [Unknown]
  - Feeding disorder [Unknown]
  - Acne [Unknown]
  - Nausea [Unknown]
  - Blister [Unknown]
  - Hair colour changes [Unknown]
  - Hypoaesthesia oral [Unknown]
  - Swollen tongue [Unknown]
  - Chest pain [Unknown]
  - Furuncle [Unknown]
  - Pain in jaw [Unknown]
  - Plicated tongue [Unknown]
  - Pain in extremity [Unknown]
  - Rash [Unknown]
  - Peripheral swelling [Unknown]
  - Abdominal pain upper [Unknown]

NARRATIVE: CASE EVENT DATE: 201801
